FAERS Safety Report 4515265-5 (Version None)
Quarter: 2004Q4

REPORT INFORMATION
  Report Type: 
  Country: None (occurrence: None)
  Receive Date: 20041130
  Receipt Date: 20041130
  Transmission Date: 20050328
  Serious: Yes (Hospitalization)
  Sender: FDA-Public Use
  Company Number: None

PATIENT
  Age: 63 Year
  Sex: Male
  Weight: 70 kg

DRUGS (4)
  1. REMICADE [Suspect]
     Indication: RHEUMATOID ARTHRITIS
     Dosage: ? 3MG/KG Q 8 WEEKS INTRAVENOU
     Route: 042
     Dates: start: 20031201, end: 20041015
  2. ARAVA [Suspect]
     Indication: RHEUMATOID ARTHRITIS
     Dosage: 20 MG  DAILY ORAL
     Route: 048
     Dates: start: 20010701, end: 20041129
  3. PREDNISONE [Concomitant]
  4. PLAQUENIL [Concomitant]

REACTIONS (14)
  - ANOREXIA [None]
  - BIOPSY BONE MARROW ABNORMAL [None]
  - CHILLS [None]
  - COUGH [None]
  - GRANULOMA [None]
  - HISTOPLASMOSIS DISSEMINATED [None]
  - LETHARGY [None]
  - MALAISE [None]
  - MICTURITION DISORDER [None]
  - NIGHT SWEATS [None]
  - PANCYTOPENIA [None]
  - PYREXIA [None]
  - SINUSITIS [None]
  - THIRST [None]
